FAERS Safety Report 7326748-7 (Version None)
Quarter: 2011Q1

REPORT INFORMATION
  Report Type: 
  Country: None (occurrence: None)
  Receive Date: 20110302
  Receipt Date: 20091005
  Transmission Date: 20110831
  Serious: No
  Sender: FDA-Public Use
  Company Number: US-PFIZER INC-2009279353

PATIENT
  Sex: Male
  Weight: 19.2 kg

DRUGS (7)
  1. ONDANSETRON [Concomitant]
     Dosage: FREQUENCY: AS NEEDED,
  2. ACICLOVIR [Concomitant]
     Route: 042
  3. ZOSYN [Concomitant]
     Route: 042
  4. BENADRYL [Concomitant]
     Dosage: FREQUENCY: AS NEEDED,
  5. VFEND [Suspect]
     Dosage: 74 MG, 2X/DAY
     Route: 042
  6. VFEND [Suspect]
     Indication: FUNGAL INFECTION
     Dosage: 75 MG, 2X/DAY
     Route: 048
     Dates: start: 20090801
  7. LORAZEPAM [Concomitant]
     Dosage: FREQUENCY: AS NEEDED,

REACTIONS (2)
  - HAEMATURIA [None]
  - LIVER FUNCTION TEST ABNORMAL [None]
